FAERS Safety Report 12059757 (Version 1)
Quarter: 2016Q1

REPORT INFORMATION
  Report Type: Spontaneous
  Country: US (occurrence: US)
  Receive Date: 20160210
  Receipt Date: 20160210
  Transmission Date: 20160526
  Serious: No
  Sender: FDA-Public Use
  Company Number: US-JNJFOC-20160207738

PATIENT
  Age: 52 Year
  Sex: Female
  Weight: 84.82 kg

DRUGS (3)
  1. DURAGESIC [Suspect]
     Active Substance: FENTANYL
     Indication: PRODUCT USED FOR UNKNOWN INDICATION
     Dosage: 100 UG/HR EVERY 3 DAYS, 25 UG/HE EVERY 3 DAYS
     Route: 062
  2. METFORMIN [Concomitant]
     Active Substance: METFORMIN HYDROCHLORIDE
     Indication: DIABETES MELLITUS
     Route: 065
     Dates: start: 1998
  3. PROTONIX [Concomitant]
     Active Substance: PANTOPRAZOLE SODIUM
     Indication: GASTROOESOPHAGEAL REFLUX DISEASE
     Route: 065
     Dates: start: 2013

REACTIONS (4)
  - Bedridden [Recovered/Resolved]
  - Malaise [Not Recovered/Not Resolved]
  - Drug dose omission [Unknown]
  - Lethargy [Recovered/Resolved]

NARRATIVE: CASE EVENT DATE: 2012
